FAERS Safety Report 9259421 (Version 2)
Quarter: 2013Q2

REPORT INFORMATION
  Report Type: Spontaneous
  Country: GB (occurrence: GB)
  Receive Date: 20130427
  Receipt Date: 20130430
  Transmission Date: 20140414
  Serious: Yes (Disabling)
  Sender: FDA-Public Use
  Company Number: GB-009507513-1304GBR014700

PATIENT
  Sex: Female
  Weight: 67.58 kg

DRUGS (2)
  1. TRUSOPT 20 MG/ML EYE DROPS, SOLUTION [Suspect]
     Indication: GLAUCOMA
     Dosage: 1 GTT, BID
     Route: 047
     Dates: start: 20130110
  2. SAFLUTAN [Concomitant]

REACTIONS (6)
  - Reaction to preservatives [Unknown]
  - Hypersensitivity [Not Recovered/Not Resolved]
  - Blepharitis [Not Recovered/Not Resolved]
  - Vision blurred [Unknown]
  - Dry eye [Not Recovered/Not Resolved]
  - Eye pain [Unknown]
